FAERS Safety Report 5083748-8 (Version None)
Quarter: 2006Q3

REPORT INFORMATION
  Report Type: 
  Country: None (occurrence: None)
  Receive Date: 20060814
  Receipt Date: 20060802
  Transmission Date: 20061208
  Serious: Yes (Hospitalization)
  Sender: FDA-Public Use
  Company Number: 2006-143147-NL

PATIENT
  Age: 32 Year
  Sex: Female

DRUGS (7)
  1. ROCURONIUM BROMIDE [Suspect]
     Indication: HYPOTONIA
     Dosage: 30 MG ONCE, INTRAVENOUS (NOS)
     Route: 042
     Dates: start: 20060424, end: 20060424
  2. ONDANSETRON HCL [Concomitant]
  3. PROPOFOL [Concomitant]
  4. SEVOFLURANE [Concomitant]
  5. REMIFENTANIL [Concomitant]
  6. OPIUM ALKALOIDS [Concomitant]
  7. MELODENE [Concomitant]

REACTIONS (2)
  - DRUG INEFFECTIVE [None]
  - NEUROMUSCULAR BLOCK PROLONGED [None]
